FAERS Safety Report 25869232 (Version 1)
Quarter: 2025Q4

REPORT INFORMATION
  Report Type: Spontaneous
  Country: US (occurrence: US)
  Receive Date: 20251001
  Receipt Date: 20251001
  Transmission Date: 20260117
  Serious: Yes (Hospitalization)
  Sender: BIOVITRUM
  Company Number: US-BIOVITRUM-2025-US-011560

PATIENT
  Age: 61 Year
  Sex: Female

DRUGS (7)
  1. DOPTELET [Suspect]
     Active Substance: AVATROMBOPAG MALEATE
     Indication: Immune thrombocytopenia
     Dosage: DAILY
     Route: 048
  2. DOPTELET [Suspect]
     Active Substance: AVATROMBOPAG MALEATE
     Dosage: DAILY/ 20 MG A DAY FOR FIRST 2 WEEKS
     Route: 048
  3. CLOBETASOL EMOLLIENT [Concomitant]
     Indication: Product used for unknown indication
     Dosage: EMOLLIENT
  4. VITAMINS [Concomitant]
     Active Substance: VITAMINS
     Indication: Product used for unknown indication
  5. COLLAGENASE POWDER [Concomitant]
     Indication: Product used for unknown indication
  6. VITAMINS [Concomitant]
     Active Substance: VITAMINS
     Indication: Product used for unknown indication
  7. PREDNISONE [Concomitant]
     Active Substance: PREDNISONE
     Indication: Product used for unknown indication

REACTIONS (18)
  - Haemoglobin decreased [Unknown]
  - Skin exfoliation [Recovered/Resolved]
  - Pruritus [Unknown]
  - Memory impairment [Unknown]
  - Intentional product use issue [Unknown]
  - Ear discomfort [Unknown]
  - Skin burning sensation [Unknown]
  - Fatigue [Unknown]
  - Dry skin [Recovered/Resolved]
  - Platelet count decreased [Unknown]
  - Red blood cell count abnormal [Unknown]
  - White blood cell count abnormal [Unknown]
  - Headache [Not Recovered/Not Resolved]
  - Dizziness [Not Recovered/Not Resolved]
  - Acne [Not Recovered/Not Resolved]
  - Tinnitus [Not Recovered/Not Resolved]
  - Visual impairment [Recovered/Resolved]
  - Adverse drug reaction [Unknown]
